FAERS Safety Report 4298978-2 (Version None)
Quarter: 2004Q1

REPORT INFORMATION
  Report Type: 
  Country: None (occurrence: None)
  Receive Date: 20040217
  Receipt Date: 20040206
  Transmission Date: 20041129
  Serious: Yes (Hospitalization)
  Sender: FDA-Public Use
  Company Number: THQ2004A00183

PATIENT
  Age: 75 Year
  Sex: Male

DRUGS (2)
  1. ACTOS [Suspect]
     Indication: DIABETES MELLITUS
     Dosage: 30 MG (1 D), PER ORAL
     Route: 048
  2. GLIBENKLAMID (GLIBENCLAMIDE) [Concomitant]

REACTIONS (2)
  - MENTAL DISORDER [None]
  - MUSCULAR WEAKNESS [None]
